FAERS Safety Report 8846184 (Version 9)
Quarter: 2013Q3

REPORT INFORMATION
  Report Type: Spontaneous
  Country: US (occurrence: US)
  Receive Date: 20121017
  Receipt Date: 20130926
  Transmission Date: 20140515
  Serious: Yes (Death, Hospitalization)
  Sender: FDA-Public Use
  Company Number: US-B.I. PHARMACEUTICALS,INC./RIDGEFIELD-2012-BP-25587BP

PATIENT
  Age: 84 Year
  Sex: Female
  Weight: 45.36 kg

DRUGS (20)
  1. PRADAXA [Suspect]
     Indication: ANTICOAGULANT THERAPY
     Dosage: 300 MG
     Route: 048
     Dates: start: 20111208, end: 20120422
  2. PRADAXA [Suspect]
     Indication: ATRIAL FIBRILLATION
  3. SYNTHROID [Concomitant]
     Indication: HYPOTHYROIDISM
     Dosage: 100 MCG
     Route: 048
  4. CENTRUM SILVER [Concomitant]
     Dates: start: 2011, end: 2012
  5. PRILOSEC [Concomitant]
     Dosage: 20 MG
     Route: 048
     Dates: start: 2011, end: 2012
  6. DITROPAN XL [Concomitant]
     Dosage: 10 MG
     Route: 048
     Dates: start: 2011, end: 2012
  7. HYDROCHLOROTHIAZIDE [Concomitant]
     Dosage: 25 MG
     Route: 048
     Dates: start: 2011, end: 2012
  8. ULTRAM [Concomitant]
     Dosage: 100 MG
     Route: 048
     Dates: start: 2011, end: 2012
  9. TRIAMTERENE-HCTZ [Concomitant]
     Dates: start: 2011, end: 2012
  10. DONEPEZIL [Concomitant]
     Dates: start: 2011, end: 2012
  11. MOBIC [Concomitant]
     Dosage: 50 MG
     Route: 048
     Dates: start: 2011, end: 2012
  12. NORVASC [Concomitant]
     Dosage: 5 MG
     Route: 048
     Dates: start: 2011, end: 2012
  13. NITROFURANTOIN MCR [Concomitant]
     Dates: start: 2011, end: 2012
  14. SEROQUEL [Concomitant]
     Route: 048
     Dates: start: 2011, end: 2012
  15. LASIX [Concomitant]
     Dosage: 40 MG
     Route: 048
     Dates: start: 2011, end: 2012
  16. STOOL SOFTENER [Concomitant]
     Dosage: 200 MG
  17. COLACE [Concomitant]
  18. VITAMIN D3 [Concomitant]
  19. LORCET [Concomitant]
     Dosage: 10 MG
     Route: 048
  20. GLUCONATE [Concomitant]
     Dosage: 325 MG

REACTIONS (16)
  - Gastrointestinal haemorrhage [Fatal]
  - Pancytopenia [Fatal]
  - Haemorrhagic stroke [Unknown]
  - Myocardial infarction [Unknown]
  - Haemorrhage [Unknown]
  - Renal haemorrhage [Unknown]
  - Epistaxis [Unknown]
  - Rectal haemorrhage [Unknown]
  - Respiratory failure [Unknown]
  - Ischaemic stroke [Unknown]
  - Vaginal haemorrhage [Unknown]
  - Skin haemorrhage [Unknown]
  - Skin disorder [Unknown]
  - Eye haemorrhage [Unknown]
  - Mouth haemorrhage [Unknown]
  - Haemorrhage [Unknown]
